FAERS Safety Report 9819366 (Version 1)
Quarter: 2014Q1

REPORT INFORMATION
  Report Type: Spontaneous
  Country: NO (occurrence: NO)
  Receive Date: 20140115
  Receipt Date: 20140115
  Transmission Date: 20141002
  Serious: Yes (Other)
  Sender: FDA-Public Use
  Company Number: NO-PFIZER INC-2014010966

PATIENT
  Age: 50 Year
  Sex: Male

DRUGS (3)
  1. LYRICA [Suspect]
     Indication: MENTAL DISORDER
     Dosage: 300 MG, 2X/DAY
     Dates: start: 2006
  2. MOGADON [Concomitant]
  3. RIVOTRIL [Concomitant]

REACTIONS (8)
  - Off label use [Unknown]
  - Drug withdrawal syndrome [Unknown]
  - Bedridden [Unknown]
  - Dysuria [Unknown]
  - Diarrhoea [Unknown]
  - Dyspnoea [Unknown]
  - Influenza [Unknown]
  - Drug ineffective for unapproved indication [Unknown]
